FAERS Safety Report 5857122-8 (Version None)
Quarter: 2008Q3

REPORT INFORMATION
  Report Type: 
  Country: None (occurrence: None)
  Receive Date: 20080825
  Receipt Date: 20080820
  Transmission Date: 20090109
  Serious: Yes (Hospitalization)
  Sender: FDA-Public Use
  Company Number: JP-ABBOTT-08P-087-0471769-00

PATIENT
  Age: 55 Year
  Sex: Male

DRUGS (3)
  1. CLARITHROMYCIN [Suspect]
     Indication: HELICOBACTER INFECTION
     Route: 048
     Dates: start: 20041016, end: 20041020
  2. OMEPRAZOLE SODIUM [Suspect]
     Indication: HELICOBACTER INFECTION
     Dates: start: 20041016, end: 20041020
  3. AMOXICILLIN [Suspect]
     Indication: HELICOBACTER INFECTION
     Route: 048
     Dates: start: 20041016, end: 20041020

REACTIONS (3)
  - GENERALISED ERYTHEMA [None]
  - MALAISE [None]
  - PYREXIA [None]
